FAERS Safety Report 4334808-8 (Version None)
Quarter: 2004Q2

REPORT INFORMATION
  Report Type: 
  Country: None (occurrence: None)
  Receive Date: 20040407
  Receipt Date: 20040407
  Transmission Date: 20050107
  Serious: Yes (Hospitalization)
  Sender: FDA-Public Use
  Company Number: None

PATIENT
  Sex: Male
  Weight: 127 kg

DRUGS (12)
  1. NAFCILLIN SODIUM [Suspect]
     Indication: BACTERAEMIA
     Dosage: 2000 MG Q4 H IV
     Route: 042
     Dates: start: 20031114, end: 20031205
  2. WARFARIN SODIUM [Concomitant]
  3. SIMVASTATIN [Concomitant]
  4. SERTRALINE [Concomitant]
  5. MULTI-VITAMINS [Concomitant]
  6. METRONIDAZOLE [Concomitant]
  7. METOPROLOL [Concomitant]
  8. LANSOPRAZOLE [Concomitant]
  9. GAPARENTIN [Concomitant]
  10. FOLIC ACID [Concomitant]
  11. ASPIRIN [Concomitant]
  12. CEFEPIME [Concomitant]

REACTIONS (2)
  - FEBRILE NEUTROPENIA [None]
  - PNEUMONIA [None]
